FAERS Safety Report 8884916 (Version 1)
Quarter: 2012Q4

REPORT INFORMATION
  Report Type: 
  Country: US (occurrence: US)
  Receive Date: 20121102
  Receipt Date: 20121102
  Transmission Date: 20130627
  Serious: No
  Sender: FDA-Public Use
  Company Number: US-PFIZER INC-2012273911

PATIENT
  Age: 58 Year
  Sex: Female
  Weight: 95.24 kg

DRUGS (6)
  1. CHANTIX [Suspect]
     Indication: SMOKING CESSATION THERAPY
     Dosage: 0.5 mg, 1x/day
     Route: 048
     Dates: start: 20121019, end: 201210
  2. CHANTIX [Suspect]
     Dosage: UNK
     Route: 048
     Dates: start: 201210
  3. METFORMIN [Concomitant]
     Indication: DIABETES
     Dosage: 500 mg, 2x/day
  4. QUINAPRIL [Concomitant]
     Indication: BLOOD PRESSURE HIGH
     Dosage: 40 mg, daily
  5. REQUIP [Concomitant]
     Indication: RESTLESS LEG SYNDROME
     Dosage: 1 mg, 2x/day
  6. REQUIP XL [Concomitant]
     Indication: RESTLESS LEGS SYNDROME
     Dosage: 4 mg, daily

REACTIONS (3)
  - Drug ineffective [Unknown]
  - Nausea [Not Recovered/Not Resolved]
  - Abnormal dreams [Not Recovered/Not Resolved]
